FAERS Safety Report 12300656 (Version 2)
Quarter: 2016Q3

REPORT INFORMATION
  Report Type: Spontaneous
  Country: CA (occurrence: CA)
  Receive Date: 20160425
  Receipt Date: 20160817
  Transmission Date: 20161109
  Serious: Yes (Hospitalization, Other)
  Sender: FDA-Public Use
  Company Number: CA-ASTELLAS-2016US015407

PATIENT
  Age: 56 Year
  Sex: Female

DRUGS (5)
  1. CYCLOPHOSPHAMIDE. [Concomitant]
     Active Substance: CYCLOPHOSPHAMIDE
     Indication: BONE MARROW CONDITIONING REGIMEN
     Dosage: 50 MG/KG, ONCE DAILY FOR 4 DAYS
     Route: 065
  2. BUSULFAN. [Concomitant]
     Active Substance: BUSULFAN
     Indication: BONE MARROW CONDITIONING REGIMEN
     Dosage: UNK UNK, UNKNOWN FREQ.
     Route: 065
  3. METHOTREXATE. [Concomitant]
     Active Substance: METHOTREXATE
     Indication: STEM CELL TRANSPLANT
     Dosage: UNK UNK, UNKNOWN FREQ. (ON DAYS 1, 3, 6 AND 11)
     Route: 065
  4. TACROLIMUS. [Suspect]
     Active Substance: TACROLIMUS
     Indication: STEM CELL TRANSPLANT
     Dosage: UNK UNK, UNKNOWN FREQ.
     Route: 065
  5. ANTITHYMOCYTE IMMUNOGLOBULIN [Concomitant]
     Active Substance: THYMOCYTE IMMUNE GLOBULIN NOS
     Indication: STEM CELL TRANSPLANT
     Dosage: UNK UNK, UNKNOWN FREQ.
     Route: 065

REACTIONS (11)
  - Aspergillus infection [Recovered/Resolved]
  - Transplant dysfunction [Unknown]
  - Cytomegalovirus infection [Recovered/Resolved]
  - Pneumonia [Unknown]
  - Infection [Unknown]
  - Subdural haematoma [Unknown]
  - Bacterial infection [Recovered/Resolved]
  - Off label use [Unknown]
  - Bacteraemia [Unknown]
  - Thrombocytopenia [Recovered/Resolved]
  - Anaemia [Unknown]
